FAERS Safety Report 9291026 (Version 1)
Quarter: 2013Q2

REPORT INFORMATION
  Report Type: Spontaneous
  Country: FR (occurrence: None)
  Receive Date: 20130513
  Receipt Date: 20130513
  Transmission Date: 20140414
  Serious: Yes (Hospitalization)
  Sender: FDA-Public Use
  Company Number: 2013P1005698

PATIENT
  Age: 81 Year
  Sex: Male

DRUGS (4)
  1. KAYEXALATE [Suspect]
     Indication: HYPERKALAEMIA
     Dosage: 2 POWERS;QD;PO
     Route: 048
     Dates: start: 20121121, end: 20121228
  2. PREVISCAN (FLUINDIONE) [Suspect]
     Indication: THROMBOSIS PROPHYLAXIS
     Dates: start: 2004, end: 20121228
  3. CORTANCYL [Concomitant]
  4. PREDNISONE [Concomitant]

REACTIONS (5)
  - Pruritus [None]
  - Sleep disorder [None]
  - Skin lesion [None]
  - No therapeutic response [None]
  - International normalised ratio abnormal [None]
